FAERS Safety Report 15386697 (Version 1)
Quarter: 2018Q3

REPORT INFORMATION
  Report Type: Spontaneous
  Country: FR (occurrence: FR)
  Receive Date: 20180914
  Receipt Date: 20180914
  Transmission Date: 20181010
  Serious: Yes (Hospitalization)
  Sender: FDA-Public Use
  Company Number: FR-ANIPHARMA-2018-FR-000140

PATIENT
  Age: 88 Year
  Sex: Male

DRUGS (11)
  1. PLAVIX [Concomitant]
     Active Substance: CLOPIDOGREL BISULFATE
     Route: 065
  2. ADROVANCE [Suspect]
     Active Substance: ALENDRONATE SODIUM\CHOLECALCIFEROL
     Dosage: 70MG DAILY
     Route: 048
     Dates: end: 20120315
  3. LASILIX [Suspect]
     Active Substance: FUROSEMIDE
     Route: 048
  4. VIRILIX [Concomitant]
     Route: 065
  5. CHIBRO?PROSCAR [Concomitant]
     Active Substance: FINASTERIDE
     Route: 065
  6. ENDOTELON [Concomitant]
     Active Substance: HERBALS
     Route: 065
  7. ATACAND [Suspect]
     Active Substance: CANDESARTAN CILEXETIL
     Indication: PRODUCT USED FOR UNKNOWN INDICATION
     Dosage: 4MG DAILY
     Route: 048
     Dates: end: 20120315
  8. DAFALGAN [Concomitant]
     Active Substance: ACETAMINOPHEN
     Route: 065
  9. JOSIR [Suspect]
     Active Substance: TAMSULOSIN
     Dosage: 4MG DAILY
     Route: 048
     Dates: end: 20120315
  10. CALCIDOSE [Concomitant]
     Active Substance: CALCIUM CARBONATE
     Route: 065
  11. IMOVANE [Concomitant]
     Active Substance: ZOPICLONE
     Route: 065

REACTIONS (2)
  - Toxic skin eruption [Not Recovered/Not Resolved]
  - Pemphigoid [Not Recovered/Not Resolved]

NARRATIVE: CASE EVENT DATE: 20120306
